FAERS Safety Report 17755211 (Version 1)
Quarter: 2020Q2

REPORT INFORMATION
  Report Type: Spontaneous
  Country: US (occurrence: US)
  Receive Date: 20200506
  Receipt Date: 20200506
  Transmission Date: 20200714
  Serious: No
  Sender: FDA-Public Use
  Company Number: None

PATIENT
  Age: 29 Year
  Sex: Female
  Weight: 53.52 kg

DRUGS (1)
  1. TRIKAFTA [Suspect]
     Active Substance: ELEXACAFTOR\IVACAFTOR\TEZACAFTOR
     Indication: CYSTIC FIBROSIS
     Dosage: ?          OTHER DOSE:100/50/75/150 MG;?
     Route: 048
     Dates: start: 20191117

REACTIONS (3)
  - Hordeolum [None]
  - Frequent bowel movements [None]
  - Dermatitis acneiform [None]
